FAERS Safety Report 9686014 (Version 2)
Quarter: 2013Q4

REPORT INFORMATION
  Report Type: Spontaneous
  Country: US (occurrence: US)
  Receive Date: 20131113
  Receipt Date: 20131113
  Transmission Date: 20140711
  Serious: No
  Sender: FDA-Public Use
  Company Number: US-ALLERGAN-1302635US

PATIENT
  Age: 75 Year
  Sex: Female

DRUGS (3)
  1. COMBIGAN[R] [Suspect]
     Indication: GLAUCOMA
     Dosage: 2 GTT, BID
     Route: 047
  2. BETA BLOCKER [Concomitant]
     Indication: HYPERTENSION
     Dosage: UNK
     Route: 048
  3. LOSARTAN [Concomitant]
     Indication: HYPERTENSION
     Dosage: UNK UNK, QD
     Route: 048

REACTIONS (3)
  - Iris disorder [Recovering/Resolving]
  - Scleral disorder [Recovering/Resolving]
  - Eye disorder [Recovering/Resolving]
